FAERS Safety Report 7897095-X (Version None)
Quarter: 2011Q4

REPORT INFORMATION
  Report Type: 
  Country: None (occurrence: None)
  Receive Date: 20111103
  Receipt Date: 20111019
  Transmission Date: 20120403
  Serious: Yes (Other)
  Sender: FDA-Public Use
  Company Number: 2011P1009533

PATIENT

DRUGS (1)
  1. WARFARIN SODIUM [Suspect]
     Indication: ACCIDENTAL EXPOSURE
     Dosage: 3 MG; X2
     Dates: start: 20111016, end: 20111017

REACTIONS (3)
  - WRONG DRUG ADMINISTERED [None]
  - NO ADVERSE EVENT [None]
  - DRUG DISPENSING ERROR [None]
